FAERS Safety Report 16194854 (Version 1)
Quarter: 2019Q2

REPORT INFORMATION
  Report Type: Spontaneous
  Country: US (occurrence: US)
  Receive Date: 20190415
  Receipt Date: 20190415
  Transmission Date: 20190711
  Serious: No
  Sender: FDA-Public Use
  Company Number: US-AMGEN-USASP2019056237

PATIENT
  Sex: Female

DRUGS (2)
  1. KADCYLA [Concomitant]
     Active Substance: ADO-TRASTUZUMAB EMTANSINE
  2. XGEVA [Suspect]
     Active Substance: DENOSUMAB
     Indication: BREAST CANCER METASTATIC
     Dosage: UNK UNK, Q6WK
     Route: 065
     Dates: start: 2018

REACTIONS (4)
  - Paranoia [Recovered/Resolved]
  - Lethargy [Recovered/Resolved]
  - Anxiety [Recovered/Resolved]
  - Off label use [Unknown]
